FAERS Safety Report 5612305-7 (Version None)
Quarter: 2008Q1

REPORT INFORMATION
  Report Type: 
  Country: None (occurrence: None)
  Receive Date: 20080131
  Receipt Date: 20080131
  Transmission Date: 20080703
  Serious: No
  Sender: FDA-Public Use
  Company Number: None

PATIENT
  Sex: Female
  Weight: 131 kg

DRUGS (1)
  1. LIDOCAINE HYDROCHLORIDE 5% AND DEXTROSE 7.5% [Suspect]
     Indication: SPINAL ANAESTHESIA
     Dosage: 2ML ONCE SPINAL
     Dates: start: 20080129

REACTIONS (3)
  - ANAESTHETIC COMPLICATION [None]
  - DRUG INEFFECTIVE [None]
  - PHARMACEUTICAL PRODUCT COMPLAINT [None]
